FAERS Safety Report 6266216-7 (Version None)
Quarter: 2009Q3

REPORT INFORMATION
  Report Type: 
  Country: None (occurrence: None)
  Receive Date: 20090713
  Receipt Date: 20090629
  Transmission Date: 20100115
  Serious: Yes (Death)
  Sender: FDA-Public Use
  Company Number: GB-MYLANLABS-2009S1011625

PATIENT
  Age: 63 Year
  Sex: Female

DRUGS (5)
  1. CARBAMAZEPINE [Suspect]
     Indication: DRUG USE FOR UNKNOWN INDICATION
     Dates: end: 20090311
  2. CARBAMAZEPINE [Suspect]
     Dates: start: 20090312
  3. KEPPRA [Suspect]
     Indication: DRUG USE FOR UNKNOWN INDICATION
  4. TOPIRAMATE [Suspect]
     Indication: DRUG USE FOR UNKNOWN INDICATION
  5. LACOSAMIDE [Suspect]
     Indication: PARTIAL SEIZURES
     Dates: start: 20090312

REACTIONS (3)
  - CHRONIC OBSTRUCTIVE PULMONARY DISEASE [None]
  - DEATH [None]
  - HYPONATRAEMIA [None]
